FAERS Safety Report 5378380-2 (Version None)
Quarter: 2007Q3

REPORT INFORMATION
  Report Type: 
  Country: None (occurrence: None)
  Receive Date: 20070702
  Receipt Date: 20070702
  Transmission Date: 20080115
  Serious: Yes (Hospitalization)
  Sender: FDA-Public Use
  Company Number: None

PATIENT
  Sex: Male
  Weight: 66.7 kg

DRUGS (2)
  1. FLUDARABINE PHOSPHATE [Suspect]
     Dosage: 225 MG
  2. RITUXIMAB (MOAB C2B8 ANTI CD20, CHIMERIC) [Suspect]
     Dosage: 670 MG

REACTIONS (4)
  - BACTERIA SPUTUM IDENTIFIED [None]
  - HERPES ZOSTER [None]
  - METHICILLIN-RESISTANT STAPHYLOCOCCAL AUREUS TEST POSITIVE [None]
  - URINARY TRACT INFECTION STAPHYLOCOCCAL [None]
